FAERS Safety Report 14740397 (Version 3)
Quarter: 2018Q2

REPORT INFORMATION
  Report Type: Report from Study
  Country: FR (occurrence: FR)
  Receive Date: 20180410
  Receipt Date: 20180628
  Transmission Date: 20180711
  Serious: Yes (Death)
  Sender: FDA-Public Use
  Company Number: PHHY2018FR022368

PATIENT
  Age: 70 Year
  Sex: Female

DRUGS (2)
  1. AFINITOR [Suspect]
     Active Substance: EVEROLIMUS
     Indication: PANCREATIC NEUROENDOCRINE TUMOUR
     Dosage: 5 MG, QD
     Route: 065
     Dates: start: 20161018
  2. SAMARIUM (153 SM) LEXIDRONAM [Suspect]
     Active Substance: SAMARIUM SM-153 LEXIDRONAM
     Indication: PRODUCT USED FOR UNKNOWN INDICATION
     Dosage: 60 MCI, QMO
     Route: 065

REACTIONS (4)
  - Back pain [Not Recovered/Not Resolved]
  - Pancreatic neuroendocrine tumour [Fatal]
  - Vomiting [Recovered/Resolved]
  - Malignant neoplasm progression [Fatal]

NARRATIVE: CASE EVENT DATE: 20161103
